FAERS Safety Report 6794696-7 (Version None)
Quarter: 2010Q2

REPORT INFORMATION
  Report Type: 
  Country: None (occurrence: None)
  Receive Date: 20100625
  Receipt Date: 20100617
  Transmission Date: 20101027
  Serious: Yes (Other)
  Sender: FDA-Public Use
  Company Number: AU-NOVOPROD-292259

PATIENT
  Age: 71 Year
  Sex: Male
  Weight: 98 kg

DRUGS (1)
  1. NOVOMIX 30 [Suspect]
     Indication: TYPE 2 DIABETES MELLITUS
     Dosage: 24 U, QD
     Dates: start: 20090911, end: 20090930

REACTIONS (3)
  - DERMATITIS ALLERGIC [None]
  - DIZZINESS [None]
  - HEADACHE [None]
